FAERS Safety Report 6073293-5 (Version None)
Quarter: 2009Q1

REPORT INFORMATION
  Report Type: 
  Country: None (occurrence: None)
  Receive Date: 20090206
  Receipt Date: 20090121
  Transmission Date: 20090719
  Serious: Yes (Hospitalization)
  Sender: FDA-Public Use
  Company Number: 2009-0072

PATIENT
  Age: 59 Year
  Sex: Male

DRUGS (1)
  1. LANREOTIDE AUTOGEL (LANREOTIDE ACETATE) (LANREOTIDE ACETATE) [Suspect]
     Indication: POST GASTRIC SURGERY SYNDROME
     Dosage: (90 MG, 1 IN 4 WK) SUBCUTANEOUS
     Route: 058
     Dates: start: 20080912

REACTIONS (1)
  - ILEUS PARALYTIC [None]
